FAERS Safety Report 23281334 (Version 1)
Quarter: 2023Q4

REPORT INFORMATION
  Report Type: Spontaneous
  Country: MX (occurrence: MX)
  Receive Date: 20231211
  Receipt Date: 20231211
  Transmission Date: 20240110
  Serious: Yes (Hospitalization, Other)
  Sender: FDA-Public Use
  Company Number: MX-SANDOZ-SDZ2023MX041093

PATIENT
  Age: 65 Year
  Sex: Male
  Weight: 69 kg

DRUGS (11)
  1. ATORVASTATIN [Suspect]
     Active Substance: ATORVASTATIN
     Indication: Product used for unknown indication
     Dosage: UNK (EVERY 12 HOURS)
     Route: 065
  2. ENTRESTO [Suspect]
     Active Substance: SACUBITRIL\VALSARTAN
     Dosage: 1 TAB EVERY 12 H
     Route: 048
     Dates: start: 202308
  3. ENTRESTO [Suspect]
     Active Substance: SACUBITRIL\VALSARTAN
     Dosage: 100 MG, Q12H
     Route: 048
     Dates: start: 202307, end: 20231129
  4. ENTRESTO [Suspect]
     Active Substance: SACUBITRIL\VALSARTAN
     Indication: Cardiac failure
     Dosage: 1 TAB EVERY 24 H
     Route: 048
     Dates: start: 20230701, end: 202308
  5. DAPAGLIFLOZIN [Suspect]
     Active Substance: DAPAGLIFLOZIN
     Indication: Product used for unknown indication
     Dosage: 10 MG
     Route: 065
  6. METOPROLOL SUCCINATE [Suspect]
     Active Substance: METOPROLOL SUCCINATE
     Indication: Product used for unknown indication
     Dosage: UNK
     Route: 065
  7. SPIRONOLACTONE [Suspect]
     Active Substance: SPIRONOLACTONE
     Indication: Product used for unknown indication
     Dosage: UNK (EVERY 12 HOURS)
     Route: 065
  8. DAPAGLIFLOZIN [Concomitant]
     Active Substance: DAPAGLIFLOZIN
     Indication: Diabetes mellitus
     Dosage: 1 TAB EVERY 24 HOURS
     Route: 048
  9. ENALAPRIL [Concomitant]
     Active Substance: ENALAPRIL
     Indication: Hypertension
     Dosage: 1/2 TAB PER DAY
     Route: 048
     Dates: start: 202208
  10. INSULIN GLARGINE [Concomitant]
     Active Substance: INSULIN GLARGINE
     Indication: Diabetes mellitus
     Dosage: 40 IU AT NIGHT
     Route: 058
  11. METOPROLOL [Concomitant]
     Active Substance: METOPROLOL
     Indication: Hypertension
     Dosage: 1 TAB EVERY 12 H
     Route: 048

REACTIONS (6)
  - Cerebral infarction [Recovering/Resolving]
  - Sciatica [Recovering/Resolving]
  - Influenza [Recovered/Resolved]
  - Body temperature increased [Recovered/Resolved]
  - Dyspnoea [Not Recovered/Not Resolved]
  - Aphasia [Recovering/Resolving]

NARRATIVE: CASE EVENT DATE: 20231103
